FAERS Safety Report 7771892 (Version 3)
Quarter: 2013Q2

REPORT INFORMATION
  Report Type: Report from Study
  Country: NL (occurrence: NL)
  Receive Date: 20110124
  Receipt Date: 20130416
  Transmission Date: 20140414
  Serious: Yes (Hospitalization, Disabling)
  Sender: FDA-Public Use
  Company Number: PHHO2011NL01007

PATIENT
  Age: 55 Year
  Sex: Male
  Weight: 63 kg

DRUGS (4)
  1. MYCOPHENOLIC ACID [Suspect]
     Indication: STEM CELL TRANSPLANT
     Dosage: 2160 MG
     Route: 048
     Dates: start: 20101201, end: 20110112
  2. SANDIMMUN [Suspect]
     Indication: STEM CELL TRANSPLANT
     Dosage: 500 MG
     Route: 048
     Dates: start: 20101124
  3. VALACICLOVIR [Suspect]
     Dosage: 500 MG, TID
     Route: 048
     Dates: start: 20101201, end: 20110112
  4. CO-TRIMOXAZOLE [Suspect]
     Dosage: 480 MG, QD
     Route: 048
     Dates: start: 20101201, end: 20110112

REACTIONS (5)
  - Oesophageal candidiasis [Recovered/Resolved]
  - Graft versus host disease [Recovered/Resolved]
  - Pyrexia [Recovered/Resolved]
  - Skin lesion [Recovered/Resolved]
  - Eosinophilia [Recovered/Resolved]
